FAERS Safety Report 15160313 (Version 1)
Quarter: 2018Q3

REPORT INFORMATION
  Report Type: Spontaneous
  Country: US (occurrence: US)
  Receive Date: 20180718
  Receipt Date: 20180718
  Transmission Date: 20181010
  Serious: No
  Sender: FDA-Public Use
  Company Number: US-STRIDES ARCOLAB LIMITED-2017SP010221

PATIENT

DRUGS (3)
  1. PREDNISONE. [Concomitant]
     Active Substance: PREDNISONE
     Indication: IMMUNE-MEDIATED NECROTISING MYOPATHY
     Dosage: 80 MG, QD
     Route: 065
  2. PREDNISONE. [Concomitant]
     Active Substance: PREDNISONE
     Dosage: DOSE TAPERED
     Route: 065
  3. MYCOPHENOLATE MOFETIL. [Suspect]
     Active Substance: MYCOPHENOLATE MOFETIL
     Indication: IMMUNE-MEDIATED NECROTISING MYOPATHY
     Dosage: UNK
     Route: 048

REACTIONS (1)
  - Off label use [Unknown]
